FAERS Safety Report 5027319-8 (Version None)
Quarter: 2006Q2

REPORT INFORMATION
  Report Type: 
  Country: None (occurrence: None)
  Receive Date: 20060612
  Receipt Date: 20060531
  Transmission Date: 20061013
  Serious: Yes (Life-Threatening, Hospitalization)
  Sender: FDA-Public Use
  Company Number: S06-USA-02123-01

PATIENT
  Sex: Female

DRUGS (1)
  1. INFASURF PRESERVATIVE FREE [Suspect]
     Indication: PROPHYLAXIS

REACTIONS (7)
  - CARDIO-RESPIRATORY ARREST NEONATAL [None]
  - HYPOVENTILATION NEONATAL [None]
  - NEONATAL DISORDER [None]
  - NEONATAL HYPOTENSION [None]
  - NEONATAL HYPOXIA [None]
  - OXYGEN SATURATION DECREASED [None]
  - PNEUMOTHORAX [None]
